FAERS Safety Report 18772432 (Version 2)
Quarter: 2021Q1

REPORT INFORMATION
  Report Type: Spontaneous
  Country: TR (occurrence: TR)
  Receive Date: 20210121
  Receipt Date: 20210317
  Transmission Date: 20210419
  Serious: Yes (Hospitalization, Other)
  Sender: FDA-Public Use
  Company Number: TR-ALXN-A202100564

PATIENT
  Age: 12 Year
  Sex: Female

DRUGS (14)
  1. VIT D [Concomitant]
     Active Substance: VITAMIN D NOS
     Indication: PROTEIN-LOSING GASTROENTEROPATHY
     Route: 065
  2. IRON [Concomitant]
     Active Substance: IRON
     Indication: PROTEIN-LOSING GASTROENTEROPATHY
     Route: 065
  3. OMEGA?3 FATTY ACIDS [Concomitant]
     Active Substance: OMEGA-3 FATTY ACIDS
     Indication: PROTEIN-LOSING GASTROENTEROPATHY
     Route: 065
  4. ACETYLSALICYLIC ACID [Concomitant]
     Active Substance: ASPIRIN
     Indication: PROTEIN-LOSING GASTROENTEROPATHY
     Route: 065
  5. SOLIRIS [Suspect]
     Active Substance: ECULIZUMAB
     Indication: PROTEIN-LOSING GASTROENTEROPATHY
  6. FOLATE [Concomitant]
     Active Substance: FOLATE SODIUM
     Indication: PROTEIN-LOSING GASTROENTEROPATHY
     Route: 065
  7. MESALAZINE [Concomitant]
     Active Substance: MESALAMINE
     Indication: PROTEIN-LOSING GASTROENTEROPATHY
     Route: 065
  8. AZATHIOPRINE. [Concomitant]
     Active Substance: AZATHIOPRINE
     Indication: PROTEIN-LOSING GASTROENTEROPATHY
     Route: 065
  9. SOLIRIS [Suspect]
     Active Substance: ECULIZUMAB
     Indication: OFF LABEL USE
     Dosage: UNK
     Route: 065
  10. MULTIVITAMINS [Concomitant]
     Active Substance: VITAMINS
     Indication: PROTEIN-LOSING GASTROENTEROPATHY
     Route: 065
  11. ALBUMIN [Concomitant]
     Active Substance: ALBUMIN HUMAN
     Indication: PROTEIN-LOSING GASTROENTEROPATHY
     Route: 065
  12. CALCIUM MAGNESIUM ZINC             /01320801/ [Concomitant]
     Indication: PROTEIN-LOSING GASTROENTEROPATHY
     Route: 065
  13. VITAMIN B12 [Concomitant]
     Active Substance: CYANOCOBALAMIN
     Indication: PROTEIN-LOSING GASTROENTEROPATHY
     Route: 065
  14. IMMUNOGLOBULIN                     /00025201/ [Concomitant]
     Active Substance: HUMAN IMMUNOGLOBULIN G
     Indication: PROTEIN-LOSING GASTROENTEROPATHY
     Route: 065

REACTIONS (3)
  - Off label use [Unknown]
  - Disease recurrence [Unknown]
  - Myocarditis [Unknown]
